FAERS Safety Report 7819135-6 (Version None)
Quarter: 2011Q4

REPORT INFORMATION
  Report Type: 
  Country: None (occurrence: None)
  Receive Date: 20111018
  Receipt Date: 20111011
  Transmission Date: 20120403
  Serious: Yes (Death, Hospitalization, Other)
  Sender: FDA-Public Use
  Company Number: PHHY2011CH89916

PATIENT
  Age: 78 Year
  Sex: Male

DRUGS (7)
  1. ADRIAMYCIN PFS [Concomitant]
  2. BLEOMYCIN SULFATE [Concomitant]
     Dosage: UNK
  3. DACARBAZINE [Concomitant]
     Dosage: UNK
  4. PREDNISONE [Suspect]
     Dosage: 2.5 MG, UNK
  5. PREDNISONE [Suspect]
     Dosage: 5 MG, UNK
  6. VINBLASTINE SULFATE [Concomitant]
     Dosage: UNK
  7. NEUPOGEN [Concomitant]
     Dosage: UNK

REACTIONS (17)
  - BRONCHOPULMONARY ASPERGILLOSIS [None]
  - VITREOUS FLOATERS [None]
  - PYREXIA [None]
  - NOCARDIOSIS [None]
  - INTRAOCULAR PRESSURE DECREASED [None]
  - GAZE PALSY [None]
  - URINARY TRACT INFECTION [None]
  - CONCOMITANT DISEASE PROGRESSION [None]
  - EYE ABSCESS [None]
  - LEUKOCYTOSIS [None]
  - HODGKIN'S DISEASE [None]
  - MUSCULOSKELETAL STIFFNESS [None]
  - RETINAL HAEMORRHAGE [None]
  - VISUAL IMPAIRMENT [None]
  - ANTERIOR CHAMBER INFLAMMATION [None]
  - LEUKOCORIA [None]
  - MONOPARESIS [None]
